FAERS Safety Report 6217331-5 (Version None)
Quarter: 2009Q2

REPORT INFORMATION
  Report Type: 
  Country: None (occurrence: None)
  Receive Date: 20090608
  Receipt Date: 20090602
  Transmission Date: 20091009
  Serious: Yes (Other)
  Sender: FDA-Public Use
  Company Number: US-PFIZER INC-2009191229

PATIENT
  Sex: Female
  Weight: 90.703 kg

DRUGS (8)
  1. XANAX [Suspect]
     Indication: BIPOLAR DISORDER
     Dosage: UNKNOWN
  2. CHANTIX [Suspect]
     Indication: SMOKING CESSATION THERAPY
     Dosage: 1 MG, 1X/DAY
     Dates: start: 20090320
  3. SEROQUEL [Suspect]
     Indication: BIPOLAR DISORDER
  4. LAMICTAL [Suspect]
     Indication: BIPOLAR DISORDER
     Dosage: UNK
  5. PERCOCET [Concomitant]
     Dosage: UNK
  6. LEVOTHYROXINE [Concomitant]
     Dosage: UNK
  7. LISINOPRIL [Concomitant]
  8. NIACIN [Concomitant]

REACTIONS (1)
  - SUICIDAL IDEATION [None]
